FAERS Safety Report 7449752-7 (Version None)
Quarter: 2011Q1

REPORT INFORMATION
  Report Type: 
  Country: None (occurrence: None)
  Receive Date: 20110302
  Receipt Date: 20110110
  Transmission Date: 20110831
  Serious: No
  Sender: FDA-Public Use
  Company Number: 022935

PATIENT
  Sex: Female
  Weight: 72.6 kg

DRUGS (13)
  1. LIPITOR [Concomitant]
  2. PROPRANOLOL [Concomitant]
  3. ATIVAN [Concomitant]
  4. CIMZIA [Suspect]
     Indication: CROHN'S DISEASE
     Dosage: SUBCUTANEOUS, 2 SYRINGES MONTHLY SUBCUTANEOUS
     Route: 058
     Dates: start: 20100826
  5. LUNESTA [Concomitant]
  6. GEODON [Concomitant]
  7. METHOTREXATE [Concomitant]
  8. NEURONTIN [Concomitant]
  9. DICYCLOMINE [Concomitant]
  10. RESTASIS [Concomitant]
  11. PAXIL [Concomitant]
  12. AMBIEN [Concomitant]
  13. SEROQUEL [Concomitant]

REACTIONS (5)
  - TINNITUS [None]
  - RASH [None]
  - EAR INFECTION [None]
  - PAIN IN EXTREMITY [None]
  - OEDEMA PERIPHERAL [None]
